FAERS Safety Report 6583932-8 (Version None)
Quarter: 2010Q1

REPORT INFORMATION
  Report Type: 
  Country: None (occurrence: None)
  Receive Date: 20100216
  Receipt Date: 20091202
  Transmission Date: 20100710
  Serious: No
  Sender: FDA-Public Use
  Company Number: US-ABBOTT-09P-163-0611931-00

PATIENT
  Sex: Male
  Weight: 87.168 kg

DRUGS (4)
  1. SIMCOR [Suspect]
     Indication: HYPERCHOLESTEROLAEMIA
     Dosage: 500/20MG AT BEDTIME
     Dates: start: 20091123
  2. ATENOLOL [Concomitant]
     Indication: DRUG USE FOR UNKNOWN INDICATION
     Dosage: DAILY
     Route: 048
  3. COZAAR [Concomitant]
     Indication: DRUG USE FOR UNKNOWN INDICATION
     Dosage: DAILY
     Route: 048
  4. ASPIRIN [Concomitant]
     Indication: DRUG USE FOR UNKNOWN INDICATION
     Route: 048

REACTIONS (1)
  - FEELING HOT [None]
